FAERS Safety Report 8647624 (Version 7)
Quarter: 2013Q1

REPORT INFORMATION
  Report Type: Spontaneous
  Country: GB (occurrence: GB)
  Receive Date: 20120703
  Receipt Date: 20130220
  Transmission Date: 20140127
  Serious: Yes (Hospitalization, Disabling)
  Sender: FDA-Public Use
  Company Number: GB-US-EMD SERONO, INC.-7143797

PATIENT
  Sex: Female

DRUGS (1)
  1. REBIF [Suspect]
     Indication: RELAPSING-REMITTING MULTIPLE SCLEROSIS
     Route: 058
     Dates: start: 20120608, end: 20120716

REACTIONS (6)
  - Multiple sclerosis relapse [Not Recovered/Not Resolved]
  - Emotional distress [Not Recovered/Not Resolved]
  - Crying [Not Recovered/Not Resolved]
  - Muscle spasms [Not Recovered/Not Resolved]
  - Mood altered [Unknown]
  - Depression [Not Recovered/Not Resolved]
